FAERS Safety Report 8595066-1 (Version None)
Quarter: 2012Q3

REPORT INFORMATION
  Report Type: 
  Country: None (occurrence: None)
  Receive Date: 20120815
  Receipt Date: 20120810
  Transmission Date: 20120928
  Serious: Yes (Other)
  Sender: FDA-Public Use
  Company Number: US-PFIZER INC-2012195990

PATIENT
  Age: 42 Year
  Sex: Female
  Weight: 61.678 kg

DRUGS (2)
  1. NEURONTIN [Suspect]
     Indication: NERVE INJURY
     Dosage: 600 MG (2 OF 300MG), 4X/DAY
     Route: 048
     Dates: start: 20101109
  2. NEURONTIN [Suspect]
     Dosage: UNK
     Route: 048

REACTIONS (4)
  - HAEMORRHAGE [None]
  - OLIGOMENORRHOEA [None]
  - DYSKINESIA [None]
  - EPILEPSY [None]
